FAERS Safety Report 5224674-0 (Version None)
Quarter: 2007Q1

REPORT INFORMATION
  Report Type: 
  Country: None (occurrence: None)
  Receive Date: 20070129
  Receipt Date: 20070129
  Transmission Date: 20070707
  Serious: Yes (Disabling)
  Sender: FDA-Public Use
  Company Number: None

PATIENT
  Age: 81 Year
  Sex: Female
  Weight: 52.1637 kg

DRUGS (1)
  1. TENORMIN [Suspect]
     Indication: BLOOD PRESSURE
     Dosage: ???  TWICE DAILY  ORALLY
     Route: 048
     Dates: start: 19990101, end: 20000101

REACTIONS (4)
  - DEAFNESS [None]
  - HYPOACUSIS [None]
  - INCORRECT DOSE ADMINISTERED [None]
  - MEDICATION ERROR [None]
